FAERS Safety Report 12865891 (Version 1)
Quarter: 2016Q4

REPORT INFORMATION
  Report Type: Spontaneous
  Country: US (occurrence: US)
  Receive Date: 20161020
  Receipt Date: 20161020
  Transmission Date: 20170207
  Serious: No
  Sender: FDA-Public Use
  Company Number: US-PFIZER INC-2016489746

PATIENT
  Age: 72 Year
  Sex: Male
  Weight: 117.93 kg

DRUGS (3)
  1. MORPHINE [Concomitant]
     Active Substance: MORPHINE
  2. LYRICA [Suspect]
     Active Substance: PREGABALIN
     Indication: NEUROPATHY PERIPHERAL
     Dosage: 300 MG, 2X/DAY
     Dates: start: 20160810
  3. LYRICA [Suspect]
     Active Substance: PREGABALIN
     Indication: NEURALGIA
     Dosage: UNK
     Dates: start: 2013

REACTIONS (3)
  - Condition aggravated [Recovering/Resolving]
  - Speech disorder [Recovered/Resolved]
  - Back disorder [Recovering/Resolving]

NARRATIVE: CASE EVENT DATE: 201610
